FAERS Safety Report 8598053-2 (Version None)
Quarter: 2012Q3

REPORT INFORMATION
  Report Type: 
  Country: None (occurrence: None)
  Receive Date: 20120816
  Receipt Date: 20120808
  Transmission Date: 20120928
  Serious: Yes (Hospitalization, Other)
  Sender: FDA-Public Use
  Company Number: JP-PFIZER INC-2012192671

PATIENT
  Age: 50 Year
  Sex: Female

DRUGS (3)
  1. LYRICA [Suspect]
     Route: 048
  2. LEVOTOMIN [Suspect]
     Route: 048
  3. ETODOLAC [Suspect]
     Route: 048

REACTIONS (5)
  - OVERDOSE [None]
  - TOXICITY TO VARIOUS AGENTS [None]
  - HALLUCINATION, VISUAL [None]
  - ALTERED STATE OF CONSCIOUSNESS [None]
  - EMOTIONAL DISORDER [None]
